FAERS Safety Report 16823519 (Version 1)
Quarter: 2019Q3

REPORT INFORMATION
  Report Type: Spontaneous
  Country: TR (occurrence: TR)
  Receive Date: 20190918
  Receipt Date: 20190918
  Transmission Date: 20191005
  Serious: Yes (Other)
  Sender: FDA-Public Use
  Company Number: TR-AMGEN-TURSP2019151573

PATIENT
  Age: 9 Year
  Sex: Male

DRUGS (1)
  1. FILGRASTIM [Suspect]
     Active Substance: FILGRASTIM
     Indication: INFANTILE GENETIC AGRANULOCYTOSIS
     Dosage: 5 MICROGRAM/KILOGRAM, QD (ONLY DURING INFECTIOUS PERIOD)
     Route: 065

REACTIONS (3)
  - Infection [Unknown]
  - Therapeutic product effect incomplete [Unknown]
  - Myelodysplastic syndrome [Unknown]
